FAERS Safety Report 9086455 (Version 1)
Quarter: 2013Q1

REPORT INFORMATION
  Report Type: Report from Study
  Country: US (occurrence: US)
  Receive Date: 20130130
  Receipt Date: 20130130
  Transmission Date: 20140127
  Serious: No
  Sender: FDA-Public Use
  Company Number: US-ABBOTT-12P-163-0989128-00

PATIENT
  Age: 78 Year
  Sex: Male

DRUGS (5)
  1. HUMIRA [Suspect]
     Indication: CROHN^S DISEASE
     Dates: start: 20120702
  2. LIPITOR [Concomitant]
     Indication: PRODUCT USED FOR UNKNOWN INDICATION
     Dosage: DAILY
  3. 6-MP [Concomitant]
     Indication: CROHN^S DISEASE
     Dosage: DAILY
  4. EUCERIN [Concomitant]
     Indication: PRODUCT USED FOR UNKNOWN INDICATION
     Dosage: SPF 30 TO FACE, ARMS, AND HANDS DAILY
  5. CALMOSEPTINE [Concomitant]
     Indication: ERYTHEMA
     Dosage: APPLIED AS NEEDED TO REDDENED SKIN IN SCROTAL/ANAL AREA

REACTIONS (2)
  - Scrotal ulcer [Recovering/Resolving]
  - Urinary tract disorder [Recovering/Resolving]
